FAERS Safety Report 4660994-6 (Version None)
Quarter: 2005Q2

REPORT INFORMATION
  Report Type: 
  Country: None (occurrence: None)
  Receive Date: 20050511
  Receipt Date: 20050502
  Transmission Date: 20051028
  Serious: Yes (Other)
  Sender: FDA-Public Use
  Company Number: 2005069204

PATIENT
  Age: 53 Year
  Sex: Female
  Weight: 62.5964 kg

DRUGS (14)
  1. BEXTRA [Suspect]
     Indication: PAIN
     Dosage: 20 MG (10 MG, 2 IN 1 D), ORAL
     Route: 048
     Dates: end: 20050401
  2. BEXTRA [Suspect]
     Indication: RHEUMATOID ARTHRITIS
     Dosage: 20 MG (10 MG, 2 IN 1 D), ORAL
     Route: 048
     Dates: end: 20050401
  3. CELEBREX [Suspect]
     Indication: RHEUMATOID ARTHRITIS
     Dosage: ORAL
     Route: 048
  4. PROVELLA-14 (ESTROGENS CONJUGATED, MEDROXYPROGESTERONE ACETATE) [Suspect]
     Indication: ILL-DEFINED DISORDER
     Dosage: ORAL
     Route: 048
  5. PREDNISONE [Suspect]
     Indication: RHEUMATOID ARTHRITIS
     Dosage: 2.5 MG (2.5 MG, 1 IN 1), ORAL
     Route: 048
  6. CETIRIZINE HCL [Concomitant]
  7. ENDAL (GUAIFENESIN, PHENYLEPHRINE HYDROCHLORIDE) [Concomitant]
  8. FLUNISOLIDE (FLUNISOLIDE) [Concomitant]
  9. MOMETASONE FUROATE [Concomitant]
  10. ATORVASTATIN CALCIUM [Concomitant]
  11. ESOMEPRAZOLE (ESOMEPRAZOLE) [Concomitant]
  12. SALMETEROL XINAFOATE (SALMETEROL XINAFOATE) [Concomitant]
  13. VICODIN [Concomitant]
  14. ANTIMALARIALS (ANTIMALARIALS) [Concomitant]

REACTIONS (14)
  - BLOOD PRESSURE DECREASED [None]
  - BLOOD PRESSURE INCREASED [None]
  - CHEST DISCOMFORT [None]
  - CHEST PAIN [None]
  - CONDITION AGGRAVATED [None]
  - DRUG DOSE OMISSION [None]
  - DRUG INEFFECTIVE [None]
  - FLUSHING [None]
  - HYPERTENSION [None]
  - PAIN [None]
  - PALPITATIONS [None]
  - RASH MACULAR [None]
  - SURGERY [None]
  - VEIN DISORDER [None]
